FAERS Safety Report 6415326-X (Version None)
Quarter: 2009Q4

REPORT INFORMATION
  Report Type: 
  Country: None (occurrence: None)
  Receive Date: 20091027
  Receipt Date: 20091022
  Transmission Date: 20100525
  Serious: Yes (Other)
  Sender: FDA-Public Use
  Company Number: PHEH2009US14317

PATIENT
  Sex: Female

DRUGS (2)
  1. EXELON [Suspect]
     Dosage: 4.6 MG, UNK
     Route: 065
  2. NAMENDA [Concomitant]
     Dosage: UNK, UNK
     Route: 065

REACTIONS (6)
  - CONFUSIONAL STATE [None]
  - DEMENTIA ALZHEIMER'S TYPE [None]
  - DIZZINESS [None]
  - DYSSTASIA [None]
  - MUSCULAR WEAKNESS [None]
  - PRESYNCOPE [None]
